FAERS Safety Report 9280010 (Version 1)
Quarter: 2013Q2

REPORT INFORMATION
  Report Type: Spontaneous
  Country: US (occurrence: None)
  Receive Date: 20130502
  Receipt Date: 20130502
  Transmission Date: 20140414
  Serious: Yes (Hospitalization, Disabling, Other)
  Sender: FDA-Public Use
  Company Number: None

PATIENT
  Sex: 0

DRUGS (1)
  1. AMAZON BLACK TOPICAL SALVE [Suspect]
     Indication: BASAL CELL CARCINOMA
     Dosage: ONCE  TOP
     Route: 061
     Dates: start: 20120921, end: 20120922

REACTIONS (3)
  - Injury [None]
  - Soft tissue disorder [None]
  - Application site reaction [None]
